FAERS Safety Report 23025850 (Version 1)
Quarter: 2023Q4

REPORT INFORMATION
  Report Type: Spontaneous
  Country: GB (occurrence: GB)
  Receive Date: 20231004
  Receipt Date: 20231004
  Transmission Date: 20240109
  Serious: Yes (Hospitalization)
  Sender: FDA-Public Use
  Company Number: None

PATIENT
  Age: 41 Year
  Sex: Female
  Weight: 120 kg

DRUGS (2)
  1. CINACALCET [Suspect]
     Active Substance: CINACALCET
     Indication: Hypercalcaemia
     Dosage: 30 MILLIGRAM, QD (TABLET)
     Route: 065
     Dates: start: 20230912, end: 20230915
  2. DULOXETINE [Concomitant]
     Active Substance: DULOXETINE
     Indication: Bone pain
     Dosage: UNK
     Route: 065
     Dates: start: 20230908, end: 20230917

REACTIONS (5)
  - Hallucination [Recovered/Resolved]
  - Balance disorder [Recovered/Resolved]
  - Vomiting [Recovered/Resolved with Sequelae]
  - Dehydration [Recovered/Resolved]
  - Hypercalcaemia [Recovered/Resolved]

NARRATIVE: CASE EVENT DATE: 20230915
